FAERS Safety Report 10097279 (Version 3)
Quarter: 2014Q3

REPORT INFORMATION
  Report Type: Report from Study
  Country: US (occurrence: US)
  Receive Date: 20140422
  Receipt Date: 20140731
  Transmission Date: 20150326
  Serious: Yes (Hospitalization)
  Sender: FDA-Public Use
  Company Number: PHEH2014US007909

PATIENT
  Age: 46 Year
  Sex: Female
  Weight: 44.9 kg

DRUGS (2)
  1. TOBI PODHALER [Suspect]
     Active Substance: TOBRAMYCIN
     Indication: CYSTIC FIBROSIS
     Dosage: 112 MG, BID
     Route: 055
     Dates: start: 201309, end: 201310
  2. TOBI [Suspect]
     Active Substance: TOBRAMYCIN
     Dosage: UNK

REACTIONS (4)
  - Cough [Unknown]
  - Burkholderia cepacia complex infection [Unknown]
  - Pulmonary function test decreased [Unknown]
  - Pseudomonas infection [Unknown]

NARRATIVE: CASE EVENT DATE: 201309
